FAERS Safety Report 16077804 (Version 1)
Quarter: 2019Q1

REPORT INFORMATION
  Report Type: Spontaneous
  Country: US (occurrence: US)
  Receive Date: 20190315
  Receipt Date: 20190315
  Transmission Date: 20190418
  Serious: Yes (Hospitalization, Other)
  Sender: FDA-Public Use
  Company Number: US-AVADEL LEGACY PHARMACEUTICALS, LLC-2019AVA00038

PATIENT
  Age: 75 Year
  Sex: Male
  Weight: 81.63 kg

DRUGS (10)
  1. ASPIRIN. [Concomitant]
     Active Substance: ASPIRIN
  2. PLETAL [Concomitant]
     Active Substance: CILOSTAZOL
  3. TAMSULOSIN [Concomitant]
     Active Substance: TAMSULOSIN
     Dosage: UNK
     Dates: end: 201702
  4. BYSTOLIC [Concomitant]
     Active Substance: NEBIVOLOL HYDROCHLORIDE
  5. NOCTIVA [Suspect]
     Active Substance: DESMOPRESSIN ACETATE
     Indication: NOCTURIA
     Dosage: 0.83 ?G, 1X/DAY 30 MINUTES PRIOR TO BEDTIME
     Route: 045
     Dates: start: 20180518, end: 20181201
  6. MV [Concomitant]
  7. CRESTOR [Concomitant]
     Active Substance: ROSUVASTATIN CALCIUM
  8. TAMSULOSIN [Concomitant]
     Active Substance: TAMSULOSIN
     Dosage: 0.8 MG
     Dates: start: 201702
  9. TRICOR [Concomitant]
     Active Substance: FENOFIBRATE
  10. LIMBREL [Concomitant]
     Active Substance: DIETARY SUPPLEMENT\FLAVOCOXID

REACTIONS (11)
  - Inappropriate antidiuretic hormone secretion [Unknown]
  - Urinary tract infection [Unknown]
  - Metabolic encephalopathy [Recovered/Resolved]
  - Chest X-ray abnormal [Unknown]
  - Atelectasis [Unknown]
  - Pneumonia [Unknown]
  - Escherichia infection [Unknown]
  - Hyponatraemia [Recovering/Resolving]
  - Dyspnoea [Unknown]
  - Diarrhoea [Recovering/Resolving]
  - Normocytic anaemia [Unknown]

NARRATIVE: CASE EVENT DATE: 2018
